FAERS Safety Report 10879746 (Version 1)
Quarter: 2015Q1

REPORT INFORMATION
  Report Type: Spontaneous
  Country: CA (occurrence: CA)
  Receive Date: 20150302
  Receipt Date: 20150302
  Transmission Date: 20150721
  Serious: Yes (Other)
  Sender: FDA-Public Use
  Company Number: CA-TEVA-543482USA

PATIENT
  Age: 17 Year
  Sex: Female

DRUGS (1)
  1. PLAN B [Suspect]
     Active Substance: LEVONORGESTREL
     Indication: POST COITAL CONTRACEPTION
     Dosage: TWO TABS TAKEN TOGETHER
     Route: 065
     Dates: start: 20150213, end: 20150213

REACTIONS (1)
  - Haemorrhage [Unknown]
